FAERS Safety Report 5230818-7 (Version None)
Quarter: 2007Q1

REPORT INFORMATION
  Report Type: 
  Country: None (occurrence: None)
  Receive Date: 20070202
  Receipt Date: 20070117
  Transmission Date: 20070707
  Serious: Yes (Hospitalization)
  Sender: FDA-Public Use
  Company Number: 152100ISR

PATIENT
  Age: 78 Year
  Sex: Male

DRUGS (9)
  1. SIMVASTATIN [Suspect]
     Dosage: ORAL
     Route: 048
     Dates: start: 20061014, end: 20061108
  2. PERINDOPRIL ERBUMINE [Suspect]
     Dosage: 4 MG (4 MG, 1 IN 1 D) ORAL
     Route: 048
     Dates: start: 20061005, end: 20061101
  3. WARFARIN SODIUM [Suspect]
     Dosage: 5 MG (5 MG, 1 IN 1 D) ORAL
     Route: 048
     Dates: start: 20061011, end: 20061101
  4. ALLOPURINOL SODIUM [Suspect]
     Dosage: 300 MG (300 MG, 1 IN 1 D) ORAL
     Route: 048
     Dates: start: 20060101, end: 20061113
  5. CANDESARTAN CILEXETIL [Suspect]
     Dosage: 8 MG (8 MG, 1 IN 1 D) ORAL
     Route: 048
     Dates: start: 20061101, end: 20061108
  6. AMIODARONE HYDROCHLORIDE [Suspect]
     Dosage: 200 MG (200 MG, 1 IN 1 D) ORAL
     Route: 048
     Dates: start: 20061008
  7. ASPIRIN [Concomitant]
  8. FUROSEMIDE [Concomitant]
  9. HEPARIN CALCIUM [Concomitant]

REACTIONS (7)
  - DEHYDRATION [None]
  - DIARRHOEA [None]
  - EOSINOPHILIA [None]
  - PROTHROMBIN TIME SHORTENED [None]
  - PRURITUS [None]
  - RENAL FAILURE ACUTE [None]
  - SKIN LESION [None]
